FAERS Safety Report 18912837 (Version 3)
Quarter: 2021Q1

REPORT INFORMATION
  Report Type: Spontaneous
  Country: US (occurrence: US)
  Receive Date: 20210218
  Receipt Date: 20210312
  Transmission Date: 20210420
  Serious: Yes (Other)
  Sender: FDA-Public Use
  Company Number: US-GLAXOSMITHKLINE-USCH2021006528

PATIENT
  Age: 78 Year
  Sex: Female

DRUGS (2)
  1. SENSODYNE PRONAMEL [Suspect]
     Active Substance: POTASSIUM NITRATE\SODIUM FLUORIDE
     Indication: DENTAL DISORDER PROPHYLAXIS
     Dosage: UNK
  2. SENSODYNE PRONAMEL FRESH BREATH [Suspect]
     Active Substance: POTASSIUM NITRATE\SODIUM FLUORIDE
     Indication: DENTAL DISORDER PROPHYLAXIS
     Dosage: UNK

REACTIONS (6)
  - Pain in extremity [Unknown]
  - Dry mouth [Unknown]
  - Oral discomfort [Recovered/Resolved]
  - Wrong technique in product usage process [Unknown]
  - Product complaint [Unknown]
  - Burn oral cavity [Unknown]

NARRATIVE: CASE EVENT DATE: 20210210
